FAERS Safety Report 10085197 (Version 1)
Quarter: 2014Q2

REPORT INFORMATION
  Report Type: Spontaneous
  Country: US (occurrence: US)
  Receive Date: 20140417
  Receipt Date: 20140417
  Transmission Date: 20141212
  Serious: Yes (Hospitalization)
  Sender: FDA-Public Use
  Company Number: US-ROXANE LABORATORIES, INC.-2014-RO-00623RO

PATIENT
  Age: 59 Year
  Sex: Male

DRUGS (4)
  1. METHADONE [Suspect]
     Indication: DRUG DEPENDENCE
     Dosage: 180 MG
     Route: 048
     Dates: start: 2005
  2. BUSPAR [Concomitant]
     Route: 065
  3. CELEXA [Concomitant]
     Route: 065
  4. CLONAZEPAM [Concomitant]
     Route: 065

REACTIONS (1)
  - Rhabdomyolysis [Not Recovered/Not Resolved]
